FAERS Safety Report 11807652 (Version 1)
Quarter: 2015Q4

REPORT INFORMATION
  Report Type: Spontaneous
  Country: US (occurrence: US)
  Receive Date: 20151207
  Receipt Date: 20151207
  Transmission Date: 20160305
  Serious: Yes (Other)
  Sender: FDA-Public Use
  Company Number: US-ASTELLAS-2015US045672

PATIENT
  Age: 89 Year
  Sex: Female

DRUGS (1)
  1. TARCEVA [Suspect]
     Active Substance: ERLOTINIB HYDROCHLORIDE
     Indication: LUNG NEOPLASM MALIGNANT
     Route: 048
     Dates: start: 20150826

REACTIONS (3)
  - Weight decreased [Unknown]
  - Alopecia [Unknown]
  - Onychomadesis [Unknown]

NARRATIVE: CASE EVENT DATE: 20151103
